FAERS Safety Report 13276436 (Version 1)
Quarter: 2017Q1

REPORT INFORMATION
  Report Type: Report from Study
  Country: US (occurrence: US)
  Receive Date: 20170228
  Receipt Date: 20170228
  Transmission Date: 20170428
  Serious: Yes (Death)
  Sender: FDA-Public Use
  Company Number: PHEH2017US005911

PATIENT
  Age: 69 Year
  Sex: Male

DRUGS (1)
  1. MEKINIST [Suspect]
     Active Substance: TRAMETINIB DIMETHYL SULFOXIDE
     Indication: LUNG NEOPLASM MALIGNANT
     Dosage: 2 MG, QD
     Route: 048
     Dates: start: 20170217

REACTIONS (4)
  - Gastric disorder [Unknown]
  - Product use issue [Unknown]
  - Death [Fatal]
  - Respiration abnormal [Unknown]

NARRATIVE: CASE EVENT DATE: 20170223
